FAERS Safety Report 25734772 (Version 2)
Quarter: 2025Q3

REPORT INFORMATION
  Report Type: Report from Study
  Country: US (occurrence: US)
  Receive Date: 20250828
  Receipt Date: 20250922
  Transmission Date: 20251020
  Serious: No
  Sender: SUNOVION
  Company Number: US-SUMITOMO PHARMA SWITZERLAND GMBH-2025SPA010791

PATIENT
  Age: 72 Year
  Sex: Male

DRUGS (8)
  1. ORGOVYX [Suspect]
     Active Substance: RELUGOLIX
     Indication: Prostate cancer
     Route: 048
  2. ORGOVYX [Suspect]
     Active Substance: RELUGOLIX
     Route: 048
  3. NUBEQA [Concomitant]
     Active Substance: DAROLUTAMIDE
  4. OXYCODONE [Concomitant]
     Active Substance: OXYCODONE
  5. TRAZODONE HCL [Concomitant]
     Active Substance: TRAZODONE HYDROCHLORIDE
  6. TIZANIDINE [Concomitant]
     Active Substance: TIZANIDINE
  7. VITAMINS [Concomitant]
     Active Substance: VITAMINS
  8. MORPHINE [Concomitant]
     Active Substance: MORPHINE

REACTIONS (3)
  - Rash macular [Unknown]
  - Fatigue [Unknown]
  - Feeling hot [Not Recovered/Not Resolved]
